FAERS Safety Report 10221036 (Version 1)
Quarter: 2014Q2

REPORT INFORMATION
  Report Type: Not Available
  Country: FR (occurrence: FR)
  Receive Date: 20140606
  Receipt Date: 20140606
  Transmission Date: 20141212
  Serious: Yes (Hospitalization)
  Sender: FDA-Public Use
  Company Number: FR-BEH-2014042964

PATIENT
  Age: 71 Year
  Sex: Female

DRUGS (5)
  1. PRIVIGEN [Suspect]
     Indication: IMMUNE THROMBOCYTOPENIC PURPURA
     Dosage: 1 G/KG (80G IN 48 H)
     Route: 042
     Dates: start: 20140407, end: 20140408
  2. SOTALOL [Concomitant]
  3. VALDOXAN [Concomitant]
  4. ALPRAZOLAM [Concomitant]
  5. IXPRIM [Concomitant]

REACTIONS (4)
  - Abdominal pain [Recovered/Resolved]
  - Nausea [Recovered/Resolved]
  - Headache [Recovered/Resolved]
  - Diverticulitis [Unknown]
